FAERS Safety Report 11368674 (Version 1)
Quarter: 2015Q3

REPORT INFORMATION
  Report Type: Spontaneous
  Country: NO (occurrence: NO)
  Receive Date: 20150812
  Receipt Date: 20150812
  Transmission Date: 20151125
  Serious: Yes (Hospitalization)
  Sender: FDA-Public Use
  Company Number: NO-009507513-1508NOR002838

PATIENT
  Age: 74 Year
  Sex: Female

DRUGS (6)
  1. INSULATARD FLEXPEN [Concomitant]
     Active Substance: INSULIN HUMAN
     Indication: TYPE 2 DIABETES MELLITUS
     Dosage: STARTED BEFORE 2012
     Route: 051
  2. ALBYL-E [Concomitant]
     Active Substance: ASPIRIN\MAGNESIUM OXIDE
     Indication: PROPHYLAXIS
     Dosage: STARTED BEFORE 2012
     Route: 048
  3. ZOPICLONE [Concomitant]
     Active Substance: ZOPICLONE
     Indication: INSOMNIA
     Dosage: 7.5 MG, STARTED BEFORE 2012
     Route: 048
  4. ATOZET COMPOSITE PACK [Suspect]
     Active Substance: ATORVASTATIN CALCIUM\EZETIMIBE
     Indication: HYPERCHOLESTEROLAEMIA
     Dosage: 10MG/20 MG, 1+0+0+0
     Route: 048
     Dates: start: 20150603, end: 20150721
  5. LEVAXIN [Concomitant]
     Active Substance: LEVOTHYROXINE SODIUM
     Indication: HYPOTHYROIDISM
     Dosage: STARTED BEFORE 2012,50 MICROGRAM AND 25 MICROGRAM, VARIABLE DURING THE WEEK
     Route: 048
  6. RAMIPRIL. [Concomitant]
     Active Substance: RAMIPRIL
     Indication: HYPERTENSION
     Dosage: STARTED BEFORE 2012
     Route: 048

REACTIONS (7)
  - Urticaria [Unknown]
  - Pain [Unknown]
  - Chest discomfort [Unknown]
  - Listless [Unknown]
  - Drug-induced liver injury [Unknown]
  - Asthenia [Unknown]
  - Nausea [Unknown]

NARRATIVE: CASE EVENT DATE: 20150603
